APPROVED DRUG PRODUCT: KYBELLA
Active Ingredient: DEOXYCHOLIC ACID
Strength: 20MG/2ML (10MG/ML)
Dosage Form/Route: SOLUTION;SUBCUTANEOUS
Application: N206333 | Product #001 | TE Code: AP
Applicant: ABBVIE INC
Approved: Apr 29, 2015 | RLD: Yes | RS: Yes | Type: RX

PATENTS:
Patent 7754230 | Expires: Dec 10, 2027
Patent 9949986 | Expires: Feb 21, 2028
Patent 7622130 | Expires: Dec 10, 2027
Patent 12161653 | Expires: Feb 17, 2032
Patent 9636349 | Expires: Feb 21, 2028
Patent 9522155 | Expires: Feb 21, 2028
Patent 8546367 | Expires: Feb 21, 2028
Patent 8461140 | Expires: Feb 21, 2028
Patent 8653058 | Expires: Mar 2, 2030
Patent 8367649 | Expires: Mar 2, 2030
Patent 8101593 | Expires: Mar 2, 2030
Patent 8883770 | Expires: Feb 21, 2028
Patent 8242294 | Expires: May 16, 2028
Patent 10500214 | Expires: Mar 2, 2030